FAERS Safety Report 9579167 (Version 1)
Quarter: 2013Q4

REPORT INFORMATION
  Report Type: Spontaneous
  Country: US (occurrence: US)
  Receive Date: 20131001
  Receipt Date: 20131001
  Transmission Date: 20140711
  Serious: No
  Sender: FDA-Public Use
  Company Number: US-AMGEN-USASP2013016535

PATIENT
  Age: 62 Year
  Sex: Female
  Weight: 63.49 kg

DRUGS (13)
  1. ENBREL [Suspect]
     Indication: RHEUMATOID ARTHRITIS
     Dosage: 50 MG, QWK
     Route: 058
  2. MELOXICAM [Concomitant]
     Dosage: 15 MG, UNK
  3. NAPROXEN [Concomitant]
     Dosage: 250 MG, UNK
  4. HYDROCHLOROTH [Concomitant]
     Dosage: 25 MG, UNK
  5. FLONASE [Concomitant]
     Dosage: UNK
  6. LEVOTHYROXIN [Concomitant]
     Dosage: 150 MUG, UNK
  7. LUTEIN                             /01638501/ [Concomitant]
     Dosage: 20 MG, UNK
  8. FISH OIL [Concomitant]
     Dosage: UNK
  9. VITAMIN D                          /00107901/ [Concomitant]
     Dosage: 1000 UNIT, UNK
  10. CALCIUM +D                         /00944201/ [Concomitant]
     Dosage: UNK
  11. FOLIC ACID [Concomitant]
     Dosage: UNK
  12. SELENIUM HOMACCORD [Concomitant]
     Dosage: UNK
  13. LYSINE [Concomitant]
     Dosage: 500 MG, UNK

REACTIONS (1)
  - Injection site pain [Unknown]
